FAERS Safety Report 23885741 (Version 1)
Quarter: 2024Q2

REPORT INFORMATION
  Report Type: Spontaneous
  Country: US (occurrence: US)
  Receive Date: 20240522
  Receipt Date: 20240522
  Transmission Date: 20240716
  Serious: Yes (Other)
  Sender: FDA-Public Use
  Company Number: US-ACELLA PHARMACEUTICALS, LLC-2024ALO00199

PATIENT
  Sex: Female

DRUGS (1)
  1. NP THYROID [Suspect]
     Active Substance: LEVOTHYROXINE\LIOTHYRONINE
     Indication: Hypothyroidism
     Dosage: 120 MG (2 TABLETS), 1X/DAY
     Route: 048

REACTIONS (4)
  - Choking [Unknown]
  - Foreign body in throat [Unknown]
  - Oesophageal injury [Not Recovered/Not Resolved]
  - Dysphagia [Not Recovered/Not Resolved]
